FAERS Safety Report 21984274 (Version 1)
Quarter: 2023Q1

REPORT INFORMATION
  Report Type: Report from Study
  Country: BE (occurrence: BE)
  Receive Date: 20230213
  Receipt Date: 20230213
  Transmission Date: 20230417
  Serious: Yes (Hospitalization)
  Sender: FDA-Public Use
  Company Number: BE-ABBVIE-4299991

PATIENT
  Sex: Male
  Weight: 90 kg

DRUGS (14)
  1. CARBIDOPA\LEVODOPA [Suspect]
     Active Substance: CARBIDOPA\LEVODOPA
     Indication: Parkinson^s disease
     Dosage: MD 8.0 ML, CD 5.1 ML/H RUNNING AT 16H. ED 5.4 ML
     Route: 050
     Dates: start: 20220713, end: 20221208
  2. CARBIDOPA\LEVODOPA [Suspect]
     Active Substance: CARBIDOPA\LEVODOPA
     Dosage: MD 8.0 ML, CD 5.1 ML/H RUNNING AT 16H, ED 5.2 ML
     Route: 050
     Dates: start: 20221208, end: 20230207
  3. CARBIDOPA\LEVODOPA [Suspect]
     Active Substance: CARBIDOPA\LEVODOPA
     Dosage: MD 4.0 ML, CD 5.1 ML/H RUNNING AT 24H, ED 4.2 ML CND 4.2 ML/H
     Dates: start: 20230207
  4. Requip modulo [Concomitant]
     Indication: Product used for unknown indication
     Dosage: 2 TABLETS, AT 8 O CLOCK?FORM STRENGTH: 8 MILLIGRAM
  5. BENSERAZIDE\LEVODOPA [Concomitant]
     Active Substance: BENSERAZIDE\LEVODOPA
     Indication: Product used for unknown indication
     Dosage: 1 CAPSULE
  6. BENSERAZIDE\LEVODOPA [Concomitant]
     Active Substance: BENSERAZIDE\LEVODOPA
     Indication: Product used for unknown indication
     Dosage: 1/2 CAPSULE, AT 18 O^CLOCK?FORM STRENGTH: 125 UNKNOWN
  7. BENSERAZIDE\LEVODOPA [Concomitant]
     Active Substance: BENSERAZIDE\LEVODOPA
     Indication: Product used for unknown indication
     Dosage: 1/2 CAPSULE
  8. BENSERAZIDE\LEVODOPA [Concomitant]
     Active Substance: BENSERAZIDE\LEVODOPA
     Indication: Product used for unknown indication
     Dosage: 1 CAPSULE, AT 9, 12, 15, 21 O CLOCK?FORM STRENGTH: 125 UNKNOWN
  9. MAGNESIUM [Concomitant]
     Active Substance: MAGNESIUM
     Indication: Product used for unknown indication
  10. ESCITALOPRAM OXALATE [Concomitant]
     Active Substance: ESCITALOPRAM OXALATE
     Indication: Product used for unknown indication
     Dosage: FORM STRENGTH: 10 MILLIGRAM
  11. XADAGO [Concomitant]
     Active Substance: SAFINAMIDE MESYLATE
     Indication: Parkinson^s disease
     Dosage: FORM STRENGTH: 50 MILLIGRAM
  12. AMITRIPTYLINE HYDROCHLORIDE [Concomitant]
     Active Substance: AMITRIPTYLINE HYDROCHLORIDE
     Indication: Product used for unknown indication
     Dosage: FORM STRENGTH: 20 MILLIGRAM
  13. Akton [Concomitant]
     Indication: Product used for unknown indication
     Dosage: AT 20
  14. REQUIP [Concomitant]
     Active Substance: ROPINIROLE HYDROCHLORIDE
     Indication: Product used for unknown indication
     Dosage: 1 CAPSULE, AT 12, 15, 21 O CLOCK?FORM STRENGTH: 5 MILLIGRAM

REACTIONS (4)
  - Infection [Recovered/Resolved]
  - Tremor [Unknown]
  - Device issue [Recovered/Resolved]
  - Device issue [Not Recovered/Not Resolved]
